FAERS Safety Report 25443009 (Version 2)
Quarter: 2025Q2

REPORT INFORMATION
  Report Type: Spontaneous
  Country: US (occurrence: US)
  Receive Date: 20250617
  Receipt Date: 20250624
  Transmission Date: 20250717
  Serious: No
  Sender: ROCHE
  Company Number: US-ROCHE-10000307740

PATIENT
  Age: 86 Year
  Sex: Female
  Weight: 63.5 kg

DRUGS (1)
  1. AVASTIN [Suspect]
     Active Substance: BEVACIZUMAB
     Indication: Neovascular age-related macular degeneration
     Route: 065
     Dates: start: 2025, end: 2025

REACTIONS (4)
  - Swelling face [Recovered/Resolved]
  - Pruritus [Recovered/Resolved]
  - Dysphagia [Recovered/Resolved]
  - Off label use [Unknown]

NARRATIVE: CASE EVENT DATE: 20250101
